FAERS Safety Report 16007016 (Version 1)
Quarter: 2019Q1

REPORT INFORMATION
  Report Type: Spontaneous
  Country: GB (occurrence: GB)
  Receive Date: 20190226
  Receipt Date: 20190226
  Transmission Date: 20190418
  Serious: Yes (Disabling)
  Sender: FDA-Public Use
  Company Number: GB-PFIZER INC-2019076960

PATIENT
  Age: 82 Year
  Sex: Male
  Weight: 96 kg

DRUGS (12)
  1. DOXAZOSIN MESILATE [Suspect]
     Active Substance: DOXAZOSIN MESYLATE
     Dosage: 1 MG, ONCE A DAY
     Dates: start: 20190116
  2. HYDROXOCOBALAMIN [Concomitant]
     Active Substance: HYDROXOCOBALAMIN
     Dosage: UNK, (USE AS DIRECTED)
     Dates: start: 20181203
  3. FUCIBET [Concomitant]
     Dosage: 2 DF ONCE A DAY
     Dates: start: 20190124
  4. ATORVASTATIN [Concomitant]
     Active Substance: ATORVASTATIN
     Dosage: 1 DF ONCE A DAY (AT NIGHT)
     Dates: start: 20181207
  5. ZEROBASE [PARAFFIN] [Concomitant]
     Dosage: UNK, APPLY AS NECESSARY
     Dates: start: 20190124
  6. CANDESARTAN. [Concomitant]
     Active Substance: CANDESARTAN
     Dosage: 1 DF ONCE A DAY (AT NIGHT)
     Dates: start: 20190102, end: 20190116
  7. PREDNISOLONE. [Concomitant]
     Active Substance: PREDNISOLONE
     Dosage: 8 TABLETS, ONCE DAILY FOR 5 DAYS
  8. LORATADINE. [Concomitant]
     Active Substance: LORATADINE
     Dosage: 1 DF ONCE A DAY
     Dates: start: 20190102
  9. LISINOPRIL. [Concomitant]
     Active Substance: LISINOPRIL
     Dosage: 1 DF, ONCE A DAY
     Dates: start: 20190124
  10. INDAPAMIDE. [Concomitant]
     Active Substance: INDAPAMIDE
     Dosage: 1 DF ONCE A DAY (EACH MORNING)
     Dates: start: 20180517
  11. LEVOTHYROXINE. [Concomitant]
     Active Substance: LEVOTHYROXINE
     Dosage: 1 DF ONCE A DAY (EACH MORNING)
     Dates: start: 20180921
  12. RAMIPRIL. [Concomitant]
     Active Substance: RAMIPRIL
     Dosage: 1 DF ONCE A DAY
     Dates: start: 20180517, end: 20190102

REACTIONS (1)
  - Glossodynia [Recovered/Resolved]

NARRATIVE: CASE EVENT DATE: 20190128
